FAERS Safety Report 5113880-1 (Version None)
Quarter: 2006Q3

REPORT INFORMATION
  Report Type: 
  Country: None (occurrence: None)
  Receive Date: 20060925
  Receipt Date: 20060914
  Transmission Date: 20061208
  Serious: Yes (Hospitalization)
  Sender: FDA-Public Use
  Company Number: US-ROCHE-463627

PATIENT
  Age: 55 Year
  Sex: Female
  Weight: 68 kg

DRUGS (11)
  1. VALCYTE [Suspect]
     Route: 048
  2. CELLCEPT [Suspect]
     Indication: SARCOIDOSIS
     Route: 048
  3. PREDNISONE TAB [Concomitant]
     Indication: SARCOIDOSIS
     Route: 048
  4. MS CONTIN [Concomitant]
     Indication: PAIN
     Route: 048
  5. POTASSIUM [Concomitant]
     Route: 048
  6. CALTRATE [Concomitant]
     Indication: OSTEOPENIA
  7. DUONEB [Concomitant]
     Indication: ASTHMA
  8. ESTRADIOL INJ [Concomitant]
     Indication: MENOPAUSE
  9. FOSAMAX [Concomitant]
     Indication: OSTEOPENIA
  10. PLAQUENIL [Concomitant]
     Indication: SARCOIDOSIS
  11. NEXIUM [Concomitant]
     Indication: ILL-DEFINED DISORDER

REACTIONS (1)
  - CYTOMEGALOVIRUS COLITIS [None]
